FAERS Safety Report 20335306 (Version 1)
Quarter: 2022Q1

REPORT INFORMATION
  Report Type: Spontaneous
  Country: JP (occurrence: JP)
  Receive Date: 20220114
  Receipt Date: 20220114
  Transmission Date: 20220423
  Serious: Yes (Hospitalization)
  Sender: FDA-Public Use
  Company Number: JP-Eisai-202110399_DVG_P_1

PATIENT
  Age: 25 Year
  Sex: Male

DRUGS (3)
  1. DAYVIGO [Suspect]
     Active Substance: LEMBOREXANT
     Indication: Intentional overdose
     Route: 048
  2. ACONITUM NAPELLUS\HOMEOPATHICS [Suspect]
     Active Substance: ACONITUM NAPELLUS\HOMEOPATHICS
     Indication: Product used for unknown indication
     Dosage: DOSE AND FREQUENCY UNKNOWN
     Route: 048
  3. SULPIRIDE [Concomitant]
     Active Substance: SULPIRIDE
     Indication: Product used for unknown indication
     Route: 048

REACTIONS (2)
  - Arrhythmic storm [Unknown]
  - Intentional overdose [Unknown]
